FAERS Safety Report 22157559 (Version 1)
Quarter: 2023Q1

REPORT INFORMATION
  Report Type: Spontaneous
  Country: US (occurrence: None)
  Receive Date: 20230330
  Receipt Date: 20230330
  Transmission Date: 20230418
  Serious: Yes (Other)
  Sender: FDA-Public Use
  Company Number: None

PATIENT
  Age: 60 Year
  Sex: Female
  Weight: 74.25 kg

DRUGS (1)
  1. BUPRENORPHINE\NALOXONE [Suspect]
     Active Substance: BUPRENORPHINE\NALOXONE
     Indication: Drug dependence
     Dates: start: 20220601, end: 20221101

REACTIONS (3)
  - Tooth loss [None]
  - Artificial crown procedure [None]
  - Dental prosthesis placement [None]

NARRATIVE: CASE EVENT DATE: 20230330
